FAERS Safety Report 9916504 (Version 3)
Quarter: 2014Q3

REPORT INFORMATION
  Report Type: Report from Study
  Country: DE (occurrence: DE)
  Receive Date: 20140221
  Receipt Date: 20140717
  Transmission Date: 20150326
  Serious: Yes (Hospitalization)
  Sender: FDA-Public Use
  Company Number: PHHY2014DE021382

PATIENT
  Sex: Male
  Weight: 56 kg

DRUGS (6)
  1. ULTIBRO BREEZHALER [Suspect]
     Active Substance: GLYCOPYRRONIUM\INDACATEROL
     Indication: CHRONIC OBSTRUCTIVE PULMONARY DISEASE
     Dosage: 1 DF, QD
     Route: 055
     Dates: start: 20131118, end: 20140221
  2. BERODUAL [Concomitant]
     Active Substance: FENOTEROL HYDROBROMIDE\IPRATROPIUM BROMIDE
     Dates: start: 20130404
  3. METYSOLON [Concomitant]
     Dosage: 16 MG, UNK
     Dates: start: 20140317
  4. GLYCOPYRRONIUM BROMIDE [Suspect]
     Active Substance: GLYCOPYRRONIUM
  5. THEOPHYLLIN [Concomitant]
     Active Substance: THEOPHYLLINE
     Dosage: 500 MG, UNK
     Dates: start: 20131009
  6. SULTANOL [Concomitant]
     Active Substance: ALBUTEROL SULFATE
     Dosage: 50 UG, UNK
     Dates: start: 20131009

REACTIONS (2)
  - Chronic obstructive pulmonary disease [Recovered/Resolved]
  - Dyspnoea [Unknown]

NARRATIVE: CASE EVENT DATE: 20140218
